FAERS Safety Report 15371749 (Version 5)
Quarter: 2018Q4

REPORT INFORMATION
  Report Type: Spontaneous
  Country: US (occurrence: US)
  Receive Date: 20180911
  Receipt Date: 20181015
  Transmission Date: 20190204
  Serious: Yes (Hospitalization)
  Sender: FDA-Public Use
  Company Number: US-ALKERMES INC.-ALK-2018-004823

PATIENT
  Age: 32 Year
  Sex: Female

DRUGS (2)
  1. VIVITROL [Suspect]
     Active Substance: NALTREXONE
     Indication: DRUG DEPENDENCE
     Dosage: 380 MG, QMO
     Route: 030
     Dates: end: 201809
  2. VIVITROL [Suspect]
     Active Substance: NALTREXONE
     Indication: ALCOHOLISM

REACTIONS (3)
  - Alcohol poisoning [Unknown]
  - Drug ineffective [Not Recovered/Not Resolved]
  - Alcoholism [Unknown]

NARRATIVE: CASE EVENT DATE: 2018
